FAERS Safety Report 25346193 (Version 1)
Quarter: 2025Q2

REPORT INFORMATION
  Report Type: Spontaneous
  Country: PT (occurrence: PT)
  Receive Date: 20250522
  Receipt Date: 20250522
  Transmission Date: 20250716
  Serious: Yes (Death, Other)
  Sender: JOHNSON AND JOHNSON
  Company Number: PT-JNJFOC-20250524449

PATIENT

DRUGS (1)
  1. TALQUETAMAB [Suspect]
     Active Substance: TALQUETAMAB
     Indication: Plasma cell myeloma
     Route: 065

REACTIONS (19)
  - Death [Fatal]
  - Tumour flare [Unknown]
  - Gastrointestinal infection [Unknown]
  - Human polyomavirus infection [Unknown]
  - Cytomegalovirus infection [Unknown]
  - Parapox virus infection [Unknown]
  - Human herpesvirus 7 infection [Unknown]
  - Cytokine release syndrome [Unknown]
  - Immune effector cell-associated neurotoxicity syndrome [Unknown]
  - COVID-19 [Unknown]
  - Plasma cell myeloma [Unknown]
  - Haematological infection [Unknown]
  - Respiratory tract infection [Unknown]
  - Infection [Unknown]
  - Bacterial infection [Unknown]
  - Influenza [Unknown]
  - Influenza [Unknown]
  - Respiratory syncytial virus infection [Unknown]
  - Fungal infection [Unknown]
